FAERS Safety Report 15773168 (Version 2)
Quarter: 2019Q1

REPORT INFORMATION
  Report Type: Spontaneous
  Country: US (occurrence: US)
  Receive Date: 20181228
  Receipt Date: 20190117
  Transmission Date: 20190417
  Serious: Yes (Other)
  Sender: FDA-Public Use
  Company Number: US-TEVA-2018-US-991249

PATIENT
  Sex: Female

DRUGS (2)
  1. KLONOPIN [Suspect]
     Active Substance: CLONAZEPAM
     Route: 065
  2. CLONAZEPAM ACTAVIS [Suspect]
     Active Substance: CLONAZEPAM
     Indication: ANXIETY
     Route: 065
     Dates: start: 201810

REACTIONS (5)
  - Headache [Unknown]
  - Malaise [Unknown]
  - Brain neoplasm [Unknown]
  - Drug ineffective [Unknown]
  - Manufacturing materials issue [Unknown]

NARRATIVE: CASE EVENT DATE: 201810
